FAERS Safety Report 9788181 (Version 1)
Quarter: 2013Q4

REPORT INFORMATION
  Report Type: Report from Study
  Country: SG (occurrence: SG)
  Receive Date: 20131230
  Receipt Date: 20131230
  Transmission Date: 20140711
  Serious: Yes (Death)
  Sender: FDA-Public Use
  Company Number: SG-BAXTER-2013BAX053271

PATIENT
  Sex: 0

DRUGS (3)
  1. GAMMAGARD S/D [Suspect]
     Indication: STEVENS-JOHNSON SYNDROME
     Route: 042
  2. GAMMAGARD S/D [Suspect]
     Indication: TOXIC EPIDERMAL NECROLYSIS
  3. GAMMAGARD S/D [Suspect]
     Indication: OFF LABEL USE

REACTIONS (1)
  - Death [Fatal]
